FAERS Safety Report 9245275 (Version 1)
Quarter: 2013Q1

REPORT INFORMATION
  Report Type: Spontaneous
  Country: US (occurrence: None)
  Receive Date: 20121130
  Receipt Date: 20121130
  Transmission Date: 20140127
  Serious: Yes (Other)
  Sender: FDA-Public Use
  Company Number: 359444

PATIENT
  Age: 55 Year
  Sex: Female
  Weight: 83.01 kg

DRUGS (7)
  1. NOVOLOG FLEXPEN [Suspect]
     Indication: TYPE 2 DIABETES MELLITUS
     Dosage: 60 UNITS, DAILY AT NIGHT, SUBCUTANEOUS
     Route: 058
     Dates: start: 20120904, end: 20120904
  2. LEVEMIR FLEXPEN (INSULIN DETEMIR) SOLUTION FOR INJECTION, .0024 MOL/L [Suspect]
     Indication: TYPE 2 DIABETES MELLITUS
     Dosage: 60 UNITS, DAILY AT NIGHT, SUBCUTANEOUS
     Dates: start: 2007
  3. METFORMIN (METFORMIN) [Concomitant]
  4. TRIAM (METRONIDAZOLE) [Concomitant]
  5. CARVEDILOL (CARVEDILOL) [Concomitant]
  6. RANITIDINE (RANITIDINE) [Concomitant]
  7. CETIRIZINE (CETIRIZINE) [Concomitant]

REACTIONS (3)
  - Drug dispensing error [None]
  - Muscle spasms [None]
  - Blood glucose decreased [None]
